FAERS Safety Report 23760881 (Version 1)
Quarter: 2024Q2

REPORT INFORMATION
  Report Type: Spontaneous
  Country: CN (occurrence: CN)
  Receive Date: 20240419
  Receipt Date: 20240419
  Transmission Date: 20240715
  Serious: Yes (Other)
  Sender: FDA-Public Use
  Company Number: CN-002147023-NVSC2024CN080266

PATIENT
  Age: 58 Year
  Sex: Male
  Weight: 85 kg

DRUGS (3)
  1. DEXAMETHASONE\TOBRAMYCIN [Suspect]
     Active Substance: DEXAMETHASONE\TOBRAMYCIN
     Indication: Antiinflammatory therapy
     Dosage: 1 DRP, QID
     Route: 047
     Dates: start: 20240329, end: 20240402
  2. LEVOFLOXACIN [Suspect]
     Active Substance: LEVOFLOXACIN
     Indication: Infection
     Dosage: 1 DRP, QID
     Route: 047
     Dates: start: 20240329, end: 20240402
  3. SODIUM HYALURONATE [Concomitant]
     Active Substance: HYALURONATE SODIUM
     Indication: Symptomatic treatment
     Dosage: 1 DRP, QID
     Route: 047
     Dates: start: 20240329, end: 20240410

REACTIONS (6)
  - Swelling face [Recovering/Resolving]
  - Erythema [Recovering/Resolving]
  - Dermatitis [Recovering/Resolving]
  - Eye swelling [Unknown]
  - Pruritus [Not Recovered/Not Resolved]
  - Vision blurred [Unknown]

NARRATIVE: CASE EVENT DATE: 20240330
